FAERS Safety Report 4562367-3 (Version None)
Quarter: 2005Q1

REPORT INFORMATION
  Report Type: 
  Country: None (occurrence: None)
  Receive Date: 20050127
  Receipt Date: 20050119
  Transmission Date: 20050727
  Serious: Yes (Hospitalization)
  Sender: FDA-Public Use
  Company Number: 200510243FR

PATIENT
  Age: 94 Year
  Sex: Female
  Weight: 64 kg

DRUGS (1)
  1. KETEK [Suspect]
     Indication: BRONCHITIS ACUTE
     Route: 048
     Dates: start: 20041214, end: 20041214

REACTIONS (4)
  - ATRIAL FIBRILLATION [None]
  - MALAISE [None]
  - MEDICATION ERROR [None]
  - PALPITATIONS [None]
